FAERS Safety Report 16368754 (Version 1)
Quarter: 2019Q2

REPORT INFORMATION
  Report Type: Spontaneous
  Country: US (occurrence: US)
  Receive Date: 20190529
  Receipt Date: 20190529
  Transmission Date: 20190711
  Serious: Yes (Life-Threatening)
  Sender: FDA-Public Use
  Company Number: US-FRESENIUS KABI-FK201906034

PATIENT
  Age: 37 Year
  Sex: Female

DRUGS (3)
  1. EPINEPHRINE. [Concomitant]
     Active Substance: EPINEPHRINE
     Indication: LOCAL ANAESTHESIA
     Dosage: IN A TOTAL OF 1400 ML TUMESCENT FLUID
     Route: 065
  2. LIDOCAINE (MANUFACTURER UNKNOWN) [Suspect]
     Active Substance: LIDOCAINE
     Indication: LOCAL ANAESTHESIA
     Dosage: IN A TOTAL OF 1400 ML TUMESCENT FLUID
     Route: 065
  3. SODIUM BICARBONATE. [Concomitant]
     Active Substance: SODIUM BICARBONATE
     Indication: LOCAL ANAESTHESIA
     Dosage: IN A TOTAL OF 1400 ML TUMESCENT FLUID
     Route: 065

REACTIONS (2)
  - Local anaesthetic systemic toxicity [Recovered/Resolved]
  - Status epilepticus [Recovered/Resolved]
